FAERS Safety Report 4429834-4 (Version None)
Quarter: 2004Q3

REPORT INFORMATION
  Report Type: 
  Country: None (occurrence: None)
  Receive Date: 20040818
  Receipt Date: 20040818
  Transmission Date: 20050211
  Serious: Yes (Life-Threatening, Hospitalization)
  Sender: FDA-Public Use
  Company Number: None

PATIENT
  Age: 79 Year
  Sex: Male
  Weight: 87 kg

DRUGS (2)
  1. PIROXICAM [Suspect]
     Indication: KNEE ARTHROPLASTY
     Dosage: 20MG QD ORAL
     Route: 048
     Dates: start: 20031218, end: 20040617
  2. PIROXICAM [Suspect]
     Indication: LOCALISED OSTEOARTHRITIS
     Dosage: 20MG QD ORAL
     Route: 048
     Dates: start: 20031218, end: 20040617

REACTIONS (2)
  - DUODENAL ULCER [None]
  - GASTROINTESTINAL HAEMORRHAGE [None]
